FAERS Safety Report 4592493-4 (Version None)
Quarter: 2005Q1

REPORT INFORMATION
  Report Type: 
  Country: None (occurrence: None)
  Receive Date: 20050222
  Receipt Date: 20050211
  Transmission Date: 20050727
  Serious: Yes (Hospitalization)
  Sender: FDA-Public Use
  Company Number: 2005028987

PATIENT
  Age: 33 Year
  Sex: Male
  Weight: 102.0593 kg

DRUGS (3)
  1. INSPRA [Suspect]
     Indication: HYPERALDOSTERONISM
     Dosage: SEE IMAGE
     Route: 048
     Dates: start: 20040101
  2. LANSOPRAZOLE [Concomitant]
  3. MULTIVITAMINS (ASCORBIC ACID, ERGOCALCIFEROL, FOLIC ACID,  NICOTINAMID [Concomitant]

REACTIONS (3)
  - COLITIS [None]
  - RECTAL HAEMORRHAGE [None]
  - WEIGHT DECREASED [None]
